FAERS Safety Report 7767161-8 (Version None)
Quarter: 2011Q3

REPORT INFORMATION
  Report Type: 
  Country: None (occurrence: None)
  Receive Date: 20110922
  Receipt Date: 20110331
  Transmission Date: 20111222
  Serious: No
  Sender: FDA-Public Use
  Company Number: US-ASTRAZENECA-2011SE18464

PATIENT
  Age: 621 Month
  Sex: Male
  Weight: 72.6 kg

DRUGS (4)
  1. ELAVIL [Concomitant]
  2. AMBIEN [Concomitant]
  3. SEROQUEL [Suspect]
     Indication: BIPOLAR DISORDER
     Route: 048
     Dates: start: 20020101, end: 20101201
  4. KLONIPINE [Concomitant]

REACTIONS (3)
  - DEPRESSION [None]
  - DRUG DOSE OMISSION [None]
  - SOMNOLENCE [None]
